FAERS Safety Report 6247440-6 (Version None)
Quarter: 2009Q2

REPORT INFORMATION
  Report Type: 
  Country: None (occurrence: None)
  Receive Date: 20090626
  Receipt Date: 20090626
  Transmission Date: 20091009
  Serious: Yes (Other)
  Sender: FDA-Public Use
  Company Number: US-PFIZER INC-2008096404

PATIENT
  Sex: Female
  Weight: 61.224 kg

DRUGS (6)
  1. NEURONTIN [Suspect]
     Indication: NEUROPATHY PERIPHERAL
     Dosage: 600 MG, 3X/DAY
     Route: 048
     Dates: start: 20060101
  2. ULTRAM [Suspect]
     Indication: PAIN
     Dosage: 100 MG, UNK
  3. INFLUENZA VACCINE [Suspect]
     Dosage: UNKNOWN   TDD:UNKNOWN
  4. VICODIN [Concomitant]
  5. ANALGESICS [Concomitant]
  6. FENTANYL [Concomitant]

REACTIONS (1)
  - GRAND MAL CONVULSION [None]
